FAERS Safety Report 12947135 (Version 1)
Quarter: 2016Q4

REPORT INFORMATION
  Report Type: Spontaneous
  Country: US (occurrence: US)
  Receive Date: 20161116
  Receipt Date: 20161116
  Transmission Date: 20170207
  Serious: Yes (Disabling, Other)
  Sender: FDA-Public Use
  Company Number: None

PATIENT
  Age: 63 Year
  Sex: Male
  Weight: 72.58 kg

DRUGS (13)
  1. AGGRENOX [Concomitant]
     Active Substance: ASPIRIN\DIPYRIDAMOLE
  2. PROPRANOLOL [Concomitant]
     Active Substance: PROPRANOLOL\PROPRANOLOL HYDROCHLORIDE
  3. PRAZOSIN [Concomitant]
     Active Substance: PRAZOSIN
  4. TERAZOSIN [Concomitant]
     Active Substance: TERAZOSIN\TERAZOSIN HYDROCHLORIDE
  5. CODEINE [Concomitant]
     Active Substance: CODEINE
  6. SYMBICORT [Concomitant]
     Active Substance: BUDESONIDE\FORMOTEROL FUMARATE DIHYDRATE
  7. CHLORTHALIDONE. [Concomitant]
     Active Substance: CHLORTHALIDONE
  8. HARVONI [Suspect]
     Active Substance: LEDIPASVIR\SOFOSBUVIR
     Indication: CHRONIC HEPATITIS C
     Route: 048
     Dates: start: 20141121, end: 20150130
  9. MIRTAZAPINE. [Concomitant]
     Active Substance: MIRTAZAPINE
  10. DONEPEZIL. [Concomitant]
     Active Substance: DONEPEZIL
  11. ALBUTEROL. [Concomitant]
     Active Substance: ALBUTEROL
  12. TERAZOSIN [Concomitant]
     Active Substance: TERAZOSIN\TERAZOSIN HYDROCHLORIDE
  13. QUETIAPINE FUMARATE. [Concomitant]
     Active Substance: QUETIAPINE FUMARATE

REACTIONS (13)
  - Visual impairment [None]
  - Arthralgia [None]
  - Prostatomegaly [None]
  - Gastrointestinal disorder [None]
  - Blood testosterone decreased [None]
  - Eye swelling [None]
  - Fatigue [None]
  - Myalgia [None]
  - Cardiac disorder [None]
  - Renal disorder [None]
  - Dementia [None]
  - Weight decreased [None]
  - Fluid retention [None]

NARRATIVE: CASE EVENT DATE: 20161015
